FAERS Safety Report 8292387-7 (Version None)
Quarter: 2012Q2

REPORT INFORMATION
  Report Type: 
  Country: None (occurrence: None)
  Receive Date: 20120417
  Receipt Date: 20120407
  Transmission Date: 20120825
  Serious: Yes (Hospitalization)
  Sender: FDA-Public Use
  Company Number: PH-PFIZER INC-2012087983

PATIENT
  Age: 60 Year
  Sex: Male
  Weight: 52.608 kg

DRUGS (3)
  1. NORVASC [Concomitant]
     Indication: HYPERTENSION
     Dosage: UNK
  2. MICARDIS [Concomitant]
     Indication: HYPERTENSION
     Dosage: UNK
  3. AXITINIB [Suspect]
     Indication: RENAL CELL CARCINOMA
     Dosage: UNK
     Dates: start: 20110308

REACTIONS (2)
  - HAEMATEMESIS [None]
  - MELAENA [None]
